FAERS Safety Report 9322261 (Version 1)
Quarter: 2013Q2

REPORT INFORMATION
  Report Type: Report from Study
  Country: CA (occurrence: CA)
  Receive Date: 20130531
  Receipt Date: 20130531
  Transmission Date: 20140414
  Serious: Yes (Other)
  Sender: FDA-Public Use
  Company Number: CA-JNJFOC-20130519203

PATIENT
  Age: 51 Year
  Sex: Male
  Weight: 91.17 kg

DRUGS (1)
  1. STELARA [Suspect]
     Indication: PSORIASIS

REACTIONS (1)
  - Urinary tract infection [Unknown]
